FAERS Safety Report 5842901-3 (Version None)
Quarter: 2008Q3

REPORT INFORMATION
  Report Type: 
  Country: None (occurrence: None)
  Receive Date: 20080813
  Receipt Date: 20080804
  Transmission Date: 20090109
  Serious: Yes (Hospitalization)
  Sender: FDA-Public Use
  Company Number: FR-BRISTOL-MYERS SQUIBB COMPANY-14297659

PATIENT
  Age: 83 Year
  Sex: Female

DRUGS (12)
  1. ENDOXAN [Suspect]
     Indication: WEGENER'S GRANULOMATOSIS
     Dosage: THERAPY DATES: 27MAY08-27MAY08, 13JUN08-13JUN08
     Route: 042
     Dates: start: 20080527, end: 20080527
  2. ATACAND [Concomitant]
     Dosage: FROM 16MG,DAILY; REDUCED TO 4MG/DAY,PO
     Route: 048
  3. AMLOR [Concomitant]
  4. DETENSIEL [Concomitant]
  5. ASPEGIC 325 [Concomitant]
  6. ELISOR [Concomitant]
  7. UN-ALFA [Concomitant]
  8. RIVOTRIL [Concomitant]
  9. ZOMETA [Concomitant]
     Dates: start: 20080104
  10. PARACETAMOL [Concomitant]
     Dosage: UPTO 2G, DAILY
  11. SOLU-MEDROL [Concomitant]
     Dates: start: 20080524, end: 20080526
  12. CORTANCYL [Concomitant]

REACTIONS (9)
  - ATRIAL FIBRILLATION [None]
  - BLOOD CREATININE INCREASED [None]
  - FALL [None]
  - HYPERKALAEMIA [None]
  - HYPONATRAEMIA [None]
  - MALAISE [None]
  - PALPITATIONS [None]
  - RENAL IMPAIRMENT [None]
  - VISION BLURRED [None]
